FAERS Safety Report 8128224 (Version 4)
Quarter: 2013Q1

REPORT INFORMATION
  Report Type: Report from Study
  Country: US (occurrence: US)
  Receive Date: 20110909
  Receipt Date: 20130326
  Transmission Date: 20140127
  Serious: Yes (Congenital Anomaly, Other)
  Sender: FDA-Public Use
  Company Number: US-UCBSA-029771

PATIENT
  Age: 0 None
  Sex: Female
  Weight: 2.99 kg

DRUGS (9)
  1. KEPPRA [Suspect]
     Indication: EPILEPSY
     Route: 064
     Dates: end: 20100623
  2. KEPPRA [Suspect]
     Indication: EPILEPSY
     Route: 064
     Dates: start: 20100624, end: 20100717
  3. KEPPRA [Suspect]
     Indication: EPILEPSY
     Route: 064
     Dates: start: 20100718, end: 20100803
  4. KEPPRA [Suspect]
     Indication: EPILEPSY
     Route: 064
     Dates: start: 20100804, end: 20100817
  5. ARMOUR THYROID [Concomitant]
     Indication: AUTOIMMUNE THYROIDITIS
     Route: 064
  6. FOLIC ACID [Concomitant]
     Indication: PREGNANCY
     Route: 064
  7. VITAMIN D3 [Concomitant]
     Indication: VITAMIN SUPPLEMENTATION
     Route: 064
  8. CALCIUM CITRATE [Concomitant]
     Indication: MINERAL SUPPLEMENTATION
     Route: 064
  9. PRENATE ELITE [Concomitant]
     Indication: PREGNANCY
     Dosage: 1 PILL
     Route: 064

REACTIONS (3)
  - Ankyloglossia congenital [Unknown]
  - Dacryostenosis congenital [Unknown]
  - Foetal exposure during pregnancy [Unknown]
